FAERS Safety Report 15269194 (Version 1)
Quarter: 2018Q3

REPORT INFORMATION
  Report Type: Spontaneous
  Country: CN (occurrence: CN)
  Receive Date: 20180813
  Receipt Date: 20180813
  Transmission Date: 20181010
  Serious: Yes (Other)
  Sender: FDA-Public Use
  Company Number: CN-BAXTER-2018BAX020975

PATIENT
  Age: 60 Year
  Sex: Male
  Weight: 57 kg

DRUGS (3)
  1. 0.9% SODIUM CHLORIDE INJECTION [Suspect]
     Active Substance: SODIUM CHLORIDE
     Indication: ADVERSE EVENT
     Route: 065
  2. MEDIUM AND LONG CHAIN FAT EMULSION INJECTION (C8?24) [Suspect]
     Active Substance: GLYCERIN\MEDIUM-CHAIN TRIGLYCERIDES\PHOSPHOLIPID\SOYBEAN OIL
     Indication: MALNUTRITION
     Route: 041
     Dates: start: 20180602, end: 20180602
  3. FAT?SOLUBLE VITAMINS FOR INJECTION (II) [Suspect]
     Active Substance: VITAMINS
     Indication: MALNUTRITION
     Route: 041
     Dates: start: 20180602, end: 20180602

REACTIONS (4)
  - Pyrexia [Recovering/Resolving]
  - Feeling cold [Recovering/Resolving]
  - Chills [Recovering/Resolving]
  - Blood pressure decreased [Recovering/Resolving]

NARRATIVE: CASE EVENT DATE: 20180602
